FAERS Safety Report 13824180 (Version 2)
Quarter: 2018Q2

REPORT INFORMATION
  Report Type: Spontaneous
  Country: US (occurrence: US)
  Receive Date: 20170802
  Receipt Date: 20180618
  Transmission Date: 20180711
  Serious: Yes (Life-Threatening, Other)
  Sender: FDA-Public Use
  Company Number: US-ASTRAZENECA-2017SE78104

PATIENT
  Age: 61 Year
  Sex: Female
  Weight: 78.5 kg

DRUGS (32)
  1. GABAPENTIN. [Concomitant]
     Active Substance: GABAPENTIN
  2. DIAZEPAM. [Concomitant]
     Active Substance: DIAZEPAM
  3. LASIX [Concomitant]
     Active Substance: FUROSEMIDE
     Indication: RENAL DISORDER
  4. HYDROCODONE [Concomitant]
     Active Substance: HYDROCODONE
     Indication: PAIN
  5. PREDNISONE. [Concomitant]
     Active Substance: PREDNISONE
  6. NEXIUM [Suspect]
     Active Substance: ESOMEPRAZOLE MAGNESIUM
     Indication: GASTRIC PH DECREASED
     Route: 048
     Dates: start: 2008, end: 2009
  7. COREG [Concomitant]
     Active Substance: CARVEDILOL
     Indication: HYPERTENSION
  8. HYDRALAZINE [Concomitant]
     Active Substance: HYDRALAZINE HYDROCHLORIDE
     Indication: HYPERTENSION
  9. TUMS [Concomitant]
     Active Substance: CALCIUM CARBONATE
  10. ONDANSETRON [Concomitant]
     Active Substance: ONDANSETRON
  11. SIMVASTATIN. [Concomitant]
     Active Substance: SIMVASTATIN
  12. TRAMADOL. [Concomitant]
     Active Substance: TRAMADOL
  13. PROMETHAZINE [Concomitant]
     Active Substance: PROMETHAZINE\PROMETHAZINE HYDROCHLORIDE
  14. AMLODIPINE [Concomitant]
     Active Substance: AMLODIPINE BESYLATE
  15. PRILOSEC OTC [Suspect]
     Active Substance: OMEPRAZOLE MAGNESIUM
     Indication: GASTRIC PH DECREASED
     Route: 048
  16. LIPITOR [Concomitant]
     Active Substance: ATORVASTATIN CALCIUM
  17. BENZONATATE. [Concomitant]
     Active Substance: BENZONATATE
  18. METHYLPREDNISOLONE. [Concomitant]
     Active Substance: METHYLPREDNISOLONE
  19. LISINOPRIL. [Concomitant]
     Active Substance: LISINOPRIL
  20. DOXYCYCLINE MONOHYDRATE [Concomitant]
     Active Substance: DOXYCYCLINE
  21. CLONIDINE. [Concomitant]
     Active Substance: CLONIDINE
  22. BUMETANIDE. [Concomitant]
     Active Substance: BUMETANIDE
  23. ROLAIDS [Concomitant]
     Active Substance: CALCIUM CARBONATE\MAGNESIUM HYDROXIDE
  24. GEMFIBROZIL. [Concomitant]
     Active Substance: GEMFIBROZIL
  25. TORSEMIDE. [Concomitant]
     Active Substance: TORSEMIDE
  26. PRILOSEC [Suspect]
     Active Substance: OMEPRAZOLE MAGNESIUM
     Indication: GASTRIC PH DECREASED
     Route: 048
  27. ATACAND [Concomitant]
     Active Substance: CANDESARTAN CILEXETIL
     Indication: RENAL DISORDER
  28. LYRICA [Concomitant]
     Active Substance: PREGABALIN
     Indication: FIBROMYALGIA
  29. CIMETIDINE [Concomitant]
     Active Substance: CIMETIDINE
     Indication: PAIN
     Dates: start: 2008
  30. ALLOPURINOL. [Concomitant]
     Active Substance: ALLOPURINOL
  31. FUROSEMIDE. [Concomitant]
     Active Substance: FUROSEMIDE
  32. ATORVASTATIN [Concomitant]
     Active Substance: ATORVASTATIN

REACTIONS (10)
  - Tubulointerstitial nephritis [Unknown]
  - Peripheral swelling [Unknown]
  - Hypertension [Unknown]
  - Renal impairment [Unknown]
  - Acute kidney injury [Unknown]
  - Chronic kidney disease [Unknown]
  - Nausea [Unknown]
  - Glomerulonephritis membranous [Unknown]
  - Renal failure [Unknown]
  - End stage renal disease [Unknown]

NARRATIVE: CASE EVENT DATE: 2012
